FAERS Safety Report 17683268 (Version 2)
Quarter: 2020Q2

REPORT INFORMATION
  Report Type: Spontaneous
  Country: DE (occurrence: DE)
  Receive Date: 20200420
  Receipt Date: 20200527
  Transmission Date: 20200714
  Serious: Yes (Life-Threatening, Hospitalization)
  Sender: FDA-Public Use
  Company Number: DE-DEXPHARM-20200339

PATIENT
  Age: 63 Year
  Sex: Male
  Weight: 106 kg

DRUGS (3)
  1. VENLAFAXIN TAD 75 MG HARTKAPSELN, RETARDIERT [Suspect]
     Active Substance: VENLAFAXINE HYDROCHLORIDE
     Indication: DEPRESSION
     Route: 048
     Dates: start: 202002, end: 20200227
  2. QUILONUM [Concomitant]
     Active Substance: LITHIUM
     Indication: BIPOLAR I DISORDER
     Dosage: ONE IN THE MORNING AND ONE IN THE EVENING
     Dates: start: 1993
  3. QUETIAPIN [Concomitant]
     Active Substance: QUETIAPINE
     Indication: BIPOLAR DISORDER
     Dosage: ONE AT NIGHT
     Dates: start: 2009

REACTIONS (19)
  - Tremor [Unknown]
  - Confusional state [Unknown]
  - Restlessness [Unknown]
  - Paraesthesia [Unknown]
  - Product substitution issue [Unknown]
  - Headache [Unknown]
  - Psychomotor hyperactivity [Unknown]
  - Disorientation [Unknown]
  - Illusion [Unknown]
  - Blood pressure increased [Unknown]
  - Dyspnoea [Unknown]
  - Screaming [Unknown]
  - Rash [Unknown]
  - Tachyphrenia [Unknown]
  - Chest discomfort [Unknown]
  - Male orgasmic disorder [Unknown]
  - Dysphagia [Unknown]
  - Breath sounds [Unknown]
  - Soliloquy [Unknown]

NARRATIVE: CASE EVENT DATE: 202002
